FAERS Safety Report 11249581 (Version 1)
Quarter: 2015Q3

REPORT INFORMATION
  Report Type: Spontaneous
  Country: US (occurrence: US)
  Receive Date: 20150708
  Receipt Date: 20150708
  Transmission Date: 20151125
  Serious: Yes (Hospitalization)
  Sender: FDA-Public Use
  Company Number: US-ELI_LILLY_AND_COMPANY-US201005007184

PATIENT
  Sex: Male
  Weight: 92.06 kg

DRUGS (18)
  1. OXYGEN. [Concomitant]
     Active Substance: OXYGEN
  2. FOLIC ACID. [Concomitant]
     Active Substance: FOLIC ACID
     Dosage: 1 MG, DAILY (1/D)
  3. OXYCODONE [Concomitant]
     Active Substance: OXYCODONE
     Dosage: 5 MG, AS NEEDED
  4. DILAUDID [Concomitant]
     Active Substance: HYDROMORPHONE HYDROCHLORIDE
  5. ALIMTA [Suspect]
     Active Substance: PEMETREXED DISODIUM
     Indication: NON-SMALL CELL LUNG CANCER
  6. NEULASTA [Concomitant]
     Active Substance: PEGFILGRASTIM
  7. FLOVENT [Concomitant]
     Active Substance: FLUTICASONE PROPIONATE
  8. PLATINUM [Concomitant]
     Active Substance: PLATINUM
  9. FENTANYL. [Concomitant]
     Active Substance: FENTANYL
     Dosage: 100 UG, UNK
  10. FENTANYL. [Concomitant]
     Active Substance: FENTANYL
     Dosage: 50 UG, UNK
  11. NEUPOGEN [Concomitant]
     Active Substance: FILGRASTIM
  12. LIPITOR [Concomitant]
     Active Substance: ATORVASTATIN CALCIUM
  13. ASPIRIN. [Concomitant]
     Active Substance: ASPIRIN
  14. PREVACID [Concomitant]
     Active Substance: LANSOPRAZOLE
  15. VITAMIN B12 [Concomitant]
     Active Substance: CYANOCOBALAMIN
  16. LUPRON [Concomitant]
     Active Substance: LEUPROLIDE ACETATE
  17. ADVAIR HFA [Concomitant]
     Active Substance: FLUTICASONE PROPIONATE\SALMETEROL XINAFOATE
  18. CARBOPLATIN. [Concomitant]
     Active Substance: CARBOPLATIN

REACTIONS (8)
  - Toxicity to various agents [Recovering/Resolving]
  - Diarrhoea [Recovered/Resolved]
  - Pyrexia [Recovered/Resolved]
  - Constipation [Unknown]
  - Acute kidney injury [Recovered/Resolved]
  - Atrial fibrillation [Recovered/Resolved]
  - Pancytopenia [Recovered/Resolved]
  - Fatigue [Not Recovered/Not Resolved]
